FAERS Safety Report 10379731 (Version 3)
Quarter: 2014Q3

REPORT INFORMATION
  Report Type: Spontaneous
  Country: US (occurrence: US)
  Receive Date: 20140812
  Receipt Date: 20140909
  Transmission Date: 20150326
  Serious: Yes (Other)
  Sender: FDA-Public Use
  Company Number: ALCN2014US004441

PATIENT
  Age: 51 Year
  Sex: Male
  Weight: 95.24 kg

DRUGS (7)
  1. KETOROLAC TROMETHAMINE. [Suspect]
     Active Substance: KETOROLAC TROMETHAMINE
     Indication: CATARACT OPERATION
     Dosage: 1 GTT, QID
     Route: 047
  2. BETADINE [Suspect]
     Active Substance: POVIDONE-IODINE
     Indication: CATARACT OPERATION
     Dosage: UNK
     Route: 047
     Dates: start: 20140724, end: 20140724
  3. OFLOXACIN. [Suspect]
     Active Substance: OFLOXACIN
     Indication: CATARACT OPERATION
     Dosage: 1 GTT, QID
     Route: 047
  4. BSS [Suspect]
     Active Substance: CALCIUM CHLORIDE\MAGNESIUM CHLORIDE\POTASSIUM CHLORIDE\SODIUM ACETATE\SODIUM CHLORIDE\SODIUM CITRATE
     Indication: CATARACT OPERATION
     Dosage: UNK
     Route: 047
     Dates: start: 20140724, end: 20140724
  5. PREDNISOLONE ACETATE. [Suspect]
     Active Substance: PREDNISOLONE ACETATE
     Indication: CATARACT OPERATION
     Dosage: 1 GTT, QID
     Route: 047
  6. ALPHAGAN P [Concomitant]
     Active Substance: BRIMONIDINE TARTRATE
     Dosage: 1 GTT, QID
  7. PREDNISONE. [Concomitant]
     Active Substance: PREDNISONE
     Indication: RHEUMATOID ARTHRITIS
     Dosage: 20 MG, QD
     Route: 048

REACTIONS (3)
  - Endophthalmitis [Not Recovered/Not Resolved]
  - Vision blurred [Not Recovered/Not Resolved]
  - Visual impairment [Not Recovered/Not Resolved]

NARRATIVE: CASE EVENT DATE: 20140802
